FAERS Safety Report 23609627 (Version 2)
Quarter: 2024Q1

REPORT INFORMATION
  Report Type: Report from Study
  Country: US (occurrence: US)
  Receive Date: 20240308
  Receipt Date: 20240317
  Transmission Date: 20240410
  Serious: Yes (Hospitalization, Other)
  Sender: FDA-Public Use
  Company Number: US-ABBVIE-5668521

PATIENT
  Age: 71 Year
  Sex: Female
  Weight: 59 kg

DRUGS (2)
  1. IMBRUVICA [Suspect]
     Active Substance: IBRUTINIB
     Indication: Waldenstrom^s macroglobulinaemia
     Dosage: FORM STRENGTH: 140 MILLIGRAM
     Route: 048
     Dates: start: 20171120
  2. THYROID [Concomitant]
     Active Substance: LEVOTHYROXINE\LIOTHYRONINE
     Indication: Thyroid disorder

REACTIONS (2)
  - Hip fracture [Recovering/Resolving]
  - Fall [Not Recovered/Not Resolved]

NARRATIVE: CASE EVENT DATE: 20240219
